FAERS Safety Report 9546894 (Version 2)
Quarter: 2014Q1

REPORT INFORMATION
  Report Type: Spontaneous
  Country: US (occurrence: None)
  Receive Date: 20130606
  Receipt Date: 20131205
  Transmission Date: 20141002
  Serious: No
  Sender: FDA-Public Use
  Company Number: 163-POMAL-13043777

PATIENT
  Age: 83 Year
  Sex: Male
  Weight: 70.31 kg

DRUGS (2)
  1. POMALYST [Suspect]
     Indication: PLASMA CELL MYELOMA
     Dosage: 2 MG, 21 IN 21 D, PO
     Route: 048
     Dates: start: 201303
  2. DEXAMETHASONE (DEXAMETHASONE) [Concomitant]

REACTIONS (2)
  - Gingival disorder [None]
  - Drug ineffective [None]
